FAERS Safety Report 5782692-8 (Version None)
Quarter: 2008Q2

REPORT INFORMATION
  Report Type: 
  Country: None (occurrence: None)
  Receive Date: 20080619
  Receipt Date: 20080619
  Transmission Date: 20081010
  Serious: Yes (Life-Threatening, Hospitalization)
  Sender: FDA-Public Use
  Company Number: None

PATIENT
  Age: 27 Year
  Sex: Female

DRUGS (2)
  1. LAMOTRIGINE [Suspect]
     Indication: CONVULSION
     Dates: start: 20080501, end: 20080523
  2. DEPAKOTE [Suspect]
     Indication: CONVULSION
     Dates: start: 20050101, end: 20080515

REACTIONS (4)
  - AGRANULOCYTOSIS [None]
  - MALAISE [None]
  - PALLOR [None]
  - PANCYTOPENIA [None]
